FAERS Safety Report 7658193-9 (Version None)
Quarter: 2011Q3

REPORT INFORMATION
  Report Type: 
  Country: None (occurrence: None)
  Receive Date: 20110804
  Receipt Date: 20110804
  Transmission Date: 20111222
  Serious: No
  Sender: FDA-Public Use
  Company Number: None

PATIENT
  Age: 19 Year
  Sex: Female
  Weight: 68.0396 kg

DRUGS (3)
  1. XANAX [Concomitant]
  2. VENLAFAXINE HCL EXTENDED-RELEASE [Suspect]
     Indication: DEPRESSION
     Dosage: VENLAFAXINE ER 150MG PO QD
     Route: 048
     Dates: start: 20110101
  3. VENLAFAXINE HCL EXTENDED-RELEASE [Suspect]
     Indication: ANXIETY
     Dosage: VENLAFAXINE ER 150MG PO QD
     Route: 048
     Dates: start: 20110101

REACTIONS (2)
  - DIZZINESS [None]
  - MYDRIASIS [None]
